FAERS Safety Report 6184060-6 (Version None)
Quarter: 2009Q2

REPORT INFORMATION
  Report Type: 
  Country: None (occurrence: None)
  Receive Date: 20090504
  Receipt Date: 20081002
  Transmission Date: 20091009
  Serious: Yes (Death)
  Sender: FDA-Public Use
  Company Number: OMX-2008-00043

PATIENT
  Age: 22 Year
  Sex: Female

DRUGS (1)
  1. EVICEL [Suspect]
     Indication: HAEMOSTASIS
     Dosage: ONCE

REACTIONS (4)
  - AIR EMBOLISM [None]
  - CARDIAC ARREST [None]
  - HAEMODYNAMIC INSTABILITY [None]
  - WRONG TECHNIQUE IN DRUG USAGE PROCESS [None]
